FAERS Safety Report 7948378-6 (Version None)
Quarter: 2011Q4

REPORT INFORMATION
  Report Type: 
  Country: None (occurrence: None)
  Receive Date: 20111130
  Receipt Date: 20111121
  Transmission Date: 20120403
  Serious: Yes (Hospitalization)
  Sender: FDA-Public Use
  Company Number: US-BAYER-201038801NA

PATIENT
  Age: 35 Year
  Sex: Female
  Weight: 101.13 kg

DRUGS (4)
  1. YASMIN [Suspect]
     Indication: PRODUCT USED FOR UNKNOWN INDICATION
     Dates: start: 20040201, end: 20050725
  2. ALBUTEROL [Concomitant]
     Dosage: UNK
     Dates: start: 20020101
  3. ALPRAZOLAM [Concomitant]
     Dosage: 0.5 MG, QID
  4. FLEXERIL [Concomitant]
     Dosage: 10 MG, TID

REACTIONS (2)
  - PULMONARY EMBOLISM [None]
  - PULMONARY INFARCTION [None]
